FAERS Safety Report 24022780 (Version 6)
Quarter: 2024Q3

REPORT INFORMATION
  Report Type: Report from Study
  Country: IT (occurrence: IT)
  Receive Date: 20240627
  Receipt Date: 20240710
  Transmission Date: 20241017
  Serious: No
  Sender: ROCHE
  Company Number: IT-ROCHE-3333379

PATIENT
  Age: 59 Year
  Sex: Female
  Weight: 62.0 kg

DRUGS (26)
  1. ALECTINIB [Suspect]
     Active Substance: ALECTINIB
     Indication: Lung cancer metastatic
     Route: 065
     Dates: start: 20220812
  2. ALECTINIB [Suspect]
     Active Substance: ALECTINIB
     Route: 048
     Dates: start: 20230109
  3. KEPPRA [Concomitant]
     Active Substance: LEVETIRACETAM
     Indication: Depression
     Route: 048
     Dates: start: 20220811
  4. ENOXAPARIN [Concomitant]
     Active Substance: ENOXAPARIN
     Indication: Diverticulitis intestinal perforated
     Route: 058
     Dates: start: 20231208, end: 20240120
  5. ENOXAPARIN [Concomitant]
     Active Substance: ENOXAPARIN
     Route: 058
     Dates: start: 20240415
  6. CARDIOASAWIN [Concomitant]
     Route: 048
     Dates: start: 20231227
  7. FUROSEMIDE [Concomitant]
     Active Substance: FUROSEMIDE
     Route: 048
     Dates: start: 20231114
  8. OMEPRAZOLE [Concomitant]
     Active Substance: OMEPRAZOLE
     Route: 048
     Dates: start: 20231227
  9. CIPROFLOXACIN [Concomitant]
     Active Substance: CIPROFLOXACIN
     Indication: Osteonecrosis
     Route: 048
     Dates: start: 20240226, end: 20240302
  10. FLUCONAZOLE [Concomitant]
     Active Substance: FLUCONAZOLE
     Dates: start: 20231208, end: 20231227
  11. ETORICOXIB [Concomitant]
     Active Substance: ETORICOXIB
     Indication: Myalgia
     Route: 048
     Dates: start: 20230315, end: 20230612
  12. ETORICOXIB [Concomitant]
     Active Substance: ETORICOXIB
     Indication: Myalgia
  13. LYRICA [Concomitant]
     Active Substance: PREGABALIN
     Indication: Myalgia
     Route: 048
     Dates: start: 20230315
  14. MS CONTIN [Concomitant]
     Active Substance: MORPHINE SULFATE
     Indication: Myalgia
     Route: 048
     Dates: start: 20230515, end: 20230611
  15. MS CONTIN [Concomitant]
     Active Substance: MORPHINE SULFATE
     Route: 048
     Dates: start: 20230612, end: 20230813
  16. MS CONTIN [Concomitant]
     Active Substance: MORPHINE SULFATE
     Route: 048
     Dates: start: 20230814, end: 20230917
  17. MS CONTIN [Concomitant]
     Active Substance: MORPHINE SULFATE
     Route: 048
     Dates: start: 20231227
  18. MS CONTIN [Concomitant]
     Active Substance: MORPHINE SULFATE
     Route: 048
     Dates: start: 20230918
  19. DEXAMETHASONE [Concomitant]
     Active Substance: DEXAMETHASONE
     Indication: Myalgia
     Route: 048
     Dates: start: 20230710, end: 20230813
  20. DEXAMETHASONE [Concomitant]
     Active Substance: DEXAMETHASONE
     Route: 048
     Dates: start: 20230814, end: 20240225
  21. DEXAMETHASONE [Concomitant]
     Active Substance: DEXAMETHASONE
     Route: 048
     Dates: start: 20240226
  22. KETOPROFEN LYSINE [Concomitant]
     Active Substance: KETOPROFEN LYSINE
     Indication: Myalgia
     Route: 048
     Dates: start: 20231016, end: 20231023
  23. TABUMOL [Concomitant]
     Indication: Myalgia
     Route: 048
     Dates: start: 20230814, end: 20230917
  24. PREGABALIN [Concomitant]
     Active Substance: PREGABALIN
     Indication: Myalgia
     Route: 048
     Dates: start: 20231227
  25. ANTIBIOTIC THERAPY (UNK INGREDIENTS) [Concomitant]
     Indication: Sepsis
     Dates: start: 20231208, end: 20231227
  26. AEROSOL THERAPY (UNK INGREDIENTS) [Concomitant]
     Dates: start: 20231209, end: 20231219

REACTIONS (1)
  - Myalgia [Not Recovered/Not Resolved]

NARRATIVE: CASE EVENT DATE: 20230417
